FAERS Safety Report 8328085-0 (Version None)
Quarter: 2012Q2

REPORT INFORMATION
  Report Type: 
  Country: None (occurrence: None)
  Receive Date: 20120502
  Receipt Date: 20120424
  Transmission Date: 20120825
  Serious: Yes (Hospitalization, Other)
  Sender: FDA-Public Use
  Company Number: PHFR2012IE001955

PATIENT
  Sex: Female

DRUGS (2)
  1. CLOZARIL [Suspect]
     Dosage: 325 MG, (100 MG MANE 225MG NOCTE)
     Route: 048
     Dates: start: 20010701
  2. CLOZARIL [Suspect]
     Indication: SCHIZOPHRENIA
     Route: 048
     Dates: start: 19990908

REACTIONS (7)
  - CONSTIPATION [None]
  - MALAISE [None]
  - HEMIPARESIS [None]
  - WHITE BLOOD CELL COUNT DECREASED [None]
  - DIARRHOEA [None]
  - ASTHENIA [None]
  - FALL [None]
